FAERS Safety Report 9158376 (Version 2)
Quarter: 2013Q1

REPORT INFORMATION
  Report Type: Other
  Country: DK (occurrence: IT)
  Receive Date: 20130312
  Receipt Date: 20130315
  Transmission Date: 20140127
  Serious: Yes (Other)
  Sender: FDA-Public Use
  Company Number: IT-FRI-1000043255

PATIENT
  Sex: Male
  Weight: 3.8 kg

DRUGS (1)
  1. CITALOPRAM [Suspect]
     Indication: MAJOR DEPRESSION
     Dosage: 20 MG
     Route: 064

REACTIONS (3)
  - Drug withdrawal syndrome neonatal [Recovering/Resolving]
  - Serotonin syndrome [Recovering/Resolving]
  - Foetal exposure during pregnancy [Recovering/Resolving]
